FAERS Safety Report 25059132 (Version 3)
Quarter: 2025Q2

REPORT INFORMATION
  Report Type: Spontaneous
  Country: US (occurrence: US)
  Receive Date: 20250310
  Receipt Date: 20250402
  Transmission Date: 20250717
  Serious: Yes (Hospitalization, Other)
  Sender: NOVARTIS
  Company Number: US-002147023-NVSC2025US039176

PATIENT
  Age: 27 Year
  Sex: Female
  Weight: 72.562 kg

DRUGS (7)
  1. MYCOPHENOLIC ACID [Suspect]
     Active Substance: MYCOPHENOLIC ACID
     Indication: Kidney transplant rejection
     Dosage: 1500 MG, BID
     Route: 048
     Dates: start: 20230128
  2. PREDNISONE [Concomitant]
     Active Substance: PREDNISONE
     Indication: Kidney transplant rejection
     Dosage: 5 MG, QD
     Route: 065
     Dates: start: 20230128
  3. TACROLIMUS [Concomitant]
     Active Substance: TACROLIMUS
     Indication: Kidney transplant rejection
     Dosage: 7 MG, BID
     Route: 065
     Dates: start: 202301
  4. TACROLIMUS [Concomitant]
     Active Substance: TACROLIMUS
     Dosage: 6 MG, BID
     Route: 065
     Dates: start: 20230128
  5. MAGNESIUM [Concomitant]
     Active Substance: MAGNESIUM
     Indication: Supplementation therapy
     Dosage: 800 MG, BID
     Route: 065
     Dates: start: 20230128
  6. LOSARTAN [Concomitant]
     Active Substance: LOSARTAN
     Indication: Hypertension
     Dosage: 100 MG, QD
     Route: 065
     Dates: start: 20230128
  7. WELLBUTRIN [Concomitant]
     Active Substance: BUPROPION HYDROCHLORIDE
     Indication: Depression
     Dosage: 150 MG, BID
     Route: 065
     Dates: start: 20240722

REACTIONS (2)
  - Abortion spontaneous [Unknown]
  - Maternal exposure timing unspecified [Unknown]

NARRATIVE: CASE EVENT DATE: 20250227
